FAERS Safety Report 7251024-0 (Version None)
Quarter: 2011Q1

REPORT INFORMATION
  Report Type: 
  Country: None (occurrence: None)
  Receive Date: 20110128
  Receipt Date: 20110118
  Transmission Date: 20110831
  Serious: Yes (Hospitalization)
  Sender: FDA-Public Use
  Company Number: B0696374A

PATIENT
  Age: 69 Year
  Sex: Male

DRUGS (16)
  1. MARAVIROC [Suspect]
     Indication: HIV INFECTION
     Dosage: 600MG TWICE PER DAY
     Dates: start: 20040117
  2. SPIRONOLACTONE [Concomitant]
     Dates: start: 20070925
  3. ATIVAN [Concomitant]
     Dates: start: 20070925, end: 20091116
  4. TESTOSTERONE [Concomitant]
     Dates: start: 20060405
  5. LOMOTIL [Concomitant]
     Dates: start: 20090701
  6. NEXIUM [Concomitant]
     Dates: start: 20090805
  7. ACYCLOVIR [Concomitant]
     Dates: start: 20020307
  8. VITAMIN B-12 [Concomitant]
     Dates: start: 20090916
  9. LEVOXYL [Concomitant]
     Dates: start: 20081021
  10. NASACORT [Concomitant]
     Dates: start: 20080711
  11. ZANTAC [Concomitant]
     Dates: start: 20080123, end: 20091116
  12. LASIX [Concomitant]
     Dates: start: 20070925, end: 20091116
  13. PERCOCET [Concomitant]
     Dates: start: 20090701
  14. MULTI-VITAMINS [Concomitant]
     Dates: start: 20090116, end: 20091116
  15. NADOLOL [Concomitant]
     Dates: start: 20040316
  16. FOLIC ACID [Concomitant]
     Dates: start: 20090116

REACTIONS (1)
  - ANAL CANCER [None]
